FAERS Safety Report 5311448-5 (Version None)
Quarter: 2007Q2

REPORT INFORMATION
  Report Type: 
  Country: None (occurrence: None)
  Receive Date: 20070426
  Receipt Date: 20070426
  Transmission Date: 20071010
  Serious: Yes (Other)
  Sender: FDA-Public Use
  Company Number: None

PATIENT
  Age: 73 Year
  Sex: Male
  Weight: 90.7 kg

DRUGS (13)
  1. BIAXIN [Suspect]
  2. METOPROLOL TARTRATE [Concomitant]
  3. DOCUSATE NA 50MG/SENNOSIDES [Concomitant]
  4. ALBUTEROL SULFATE AND IPRATROPIUM BROMIDE [Concomitant]
  5. LORATADINE [Concomitant]
  6. OMEPRAZOLE [Concomitant]
  7. TRAVOPROST [Concomitant]
  8. SERTRALINE HCL [Concomitant]
  9. FORMOTEROL FUMARATE [Concomitant]
  10. GLYBURIDE [Concomitant]
  11. HYPROMELLOSE [Concomitant]
  12. SIMVASTATIN [Concomitant]
  13. PIROXICAM [Concomitant]

REACTIONS (1)
  - HEPATIC ENZYME ABNORMAL [None]
